FAERS Safety Report 15881293 (Version 1)
Quarter: 2019Q1

REPORT INFORMATION
  Report Type: Spontaneous
  Country: GB (occurrence: GB)
  Receive Date: 20190128
  Receipt Date: 20190128
  Transmission Date: 20190417
  Serious: Yes (Hospitalization)
  Sender: FDA-Public Use
  Company Number: GB-MYLANLABS-2019M1007215

PATIENT
  Age: 79 Year
  Sex: Male

DRUGS (13)
  1. EDOXABAN [Suspect]
     Active Substance: EDOXABAN TOSYLATE
     Indication: ATRIAL FIBRILLATION
     Dosage: 60 MILLIGRAM, QD
     Route: 048
     Dates: end: 20180708
  2. LOSARTAN POTASSIUM. [Concomitant]
     Active Substance: LOSARTAN POTASSIUM
     Dosage: UNK
  3. IBUPROFEN. [Suspect]
     Active Substance: IBUPROFEN
     Indication: PAIN MANAGEMENT
     Dosage: 1200 MILLIGRAM, QD
     Route: 048
     Dates: end: 20180708
  4. DOXAZOSIN MESYLATE. [Concomitant]
     Active Substance: DOXAZOSIN MESYLATE
  5. OMEPRAZOLE. [Concomitant]
     Active Substance: OMEPRAZOLE
  6. SALBUTAMOL [Concomitant]
     Active Substance: ALBUTEROL
  7. SIMVASTATIN. [Concomitant]
     Active Substance: SIMVASTATIN
  8. FOSTAIR [Concomitant]
     Active Substance: BECLOMETHASONE\FORMOTEROL
  9. FERROUS FUMARATE [Concomitant]
     Active Substance: FERROUS FUMARATE
  10. METFORMIN [Concomitant]
     Active Substance: METFORMIN HYDROCHLORIDE
  11. BISOPROLOL FUMARATE. [Concomitant]
     Active Substance: BISOPROLOL FUMARATE
  12. IBUPROFEN. [Concomitant]
     Active Substance: IBUPROFEN
  13. FUROSEMIDE. [Concomitant]
     Active Substance: FUROSEMIDE

REACTIONS (1)
  - Haematuria [Recovering/Resolving]

NARRATIVE: CASE EVENT DATE: 20180704
